FAERS Safety Report 10254844 (Version 2)
Quarter: 2014Q3

REPORT INFORMATION
  Report Type: Spontaneous
  Country: IT (occurrence: IT)
  Receive Date: 20140624
  Receipt Date: 20140702
  Transmission Date: 20150326
  Serious: Yes (Death, Hospitalization)
  Sender: FDA-Public Use
  Company Number: IT-JNJFOC-20140613098

PATIENT
  Age: 78 Year
  Sex: Male
  Weight: 70 kg

DRUGS (1)
  1. ZYTIGA [Suspect]
     Active Substance: ABIRATERONE ACETATE
     Indication: PROSTATE CANCER RECURRENT
     Dosage: 250 MG TO TAKE WITH A FREQUENCY OF 4??TABLETS/DAY
     Route: 048
     Dates: start: 20140411, end: 20140427

REACTIONS (6)
  - Ventricular extrasystoles [Fatal]
  - Rales [Unknown]
  - Atrial fibrillation [Fatal]
  - Oedema peripheral [Fatal]
  - Oedema [Fatal]
  - Gradenigo^s syndrome [Unknown]

NARRATIVE: CASE EVENT DATE: 20140422
